FAERS Safety Report 8914067 (Version 1)
Quarter: 2012Q4

REPORT INFORMATION
  Report Type: 
  Country: US (occurrence: US)
  Receive Date: 20121119
  Receipt Date: 20121119
  Transmission Date: 20130627
  Serious: No
  Sender: FDA-Public Use
  Company Number: US-BAYER-2012-118289

PATIENT
  Sex: Female

DRUGS (1)
  1. MIRENA [Suspect]
     Indication: CONTRACEPTION
     Dosage: Daily dose 20 mcg/24hr
     Dates: start: 20120725

REACTIONS (4)
  - Menstrual disorder [None]
  - Menstrual disorder [None]
  - Device expulsion [None]
  - Polyp [None]
